FAERS Safety Report 7970838-2 (Version None)
Quarter: 2011Q4

REPORT INFORMATION
  Report Type: 
  Country: None (occurrence: None)
  Receive Date: 20111122
  Receipt Date: 20110628
  Transmission Date: 20120403
  Serious: No
  Sender: FDA-Public Use
  Company Number: PHHY2011US34481

PATIENT
  Age: 41 Year
  Sex: Female
  Weight: 74.8 kg

DRUGS (4)
  1. VITAMAN D3 (COLECALCIFEROL) [Concomitant]
  2. COZAAR [Concomitant]
  3. GILENYA [Suspect]
     Indication: MULTIPLE SCLEROSIS
     Dosage: 0.5 MG, QD, ORAL
     Route: 048
     Dates: start: 20110407
  4. ZANAFLEX [Concomitant]

REACTIONS (6)
  - TREMOR [None]
  - COLD SWEAT [None]
  - FEELING COLD [None]
  - HYPOAESTHESIA [None]
  - CHEST DISCOMFORT [None]
  - HEADACHE [None]
